FAERS Safety Report 7426426-X (Version None)
Quarter: 2011Q2

REPORT INFORMATION
  Report Type: 
  Country: None (occurrence: None)
  Receive Date: 20110420
  Receipt Date: 20110412
  Transmission Date: 20111010
  Serious: Yes (Hospitalization)
  Sender: FDA-Public Use
  Company Number: US-ASTRAZENECA-2011SE02596

PATIENT
  Age: 49 Year
  Sex: Female
  Weight: 61.2 kg

DRUGS (8)
  1. EFFEXOR [Concomitant]
     Route: 048
     Dates: start: 20110325
  2. AMBIEN [Concomitant]
     Indication: INSOMNIA
     Route: 048
  3. SEROQUEL XR [Suspect]
     Route: 048
     Dates: start: 20110325
  4. SYNTHROID [Concomitant]
  5. TOPROL-XL [Concomitant]
  6. KLONOPIN [Concomitant]
  7. SEROQUEL XR [Suspect]
     Indication: BIPOLAR I DISORDER
     Route: 048
     Dates: start: 20000101
  8. TRILEPTAL [Concomitant]
     Indication: BIPOLAR DISORDER
     Route: 048
     Dates: start: 20040101

REACTIONS (7)
  - AGITATED DEPRESSION [None]
  - MEMORY IMPAIRMENT [None]
  - SPEECH DISORDER [None]
  - SOCIAL FEAR [None]
  - INSOMNIA [None]
  - IMPAIRED DRIVING ABILITY [None]
  - DRUG DOSE OMISSION [None]
